FAERS Safety Report 24194317 (Version 1)
Quarter: 2024Q3

REPORT INFORMATION
  Report Type: Report from Study
  Country: AR (occurrence: AR)
  Receive Date: 20240809
  Receipt Date: 20240809
  Transmission Date: 20241017
  Serious: Yes (Hospitalization, Other)
  Sender: NOVARTIS
  Company Number: AR-002147023-NVSC2023AR198330

PATIENT
  Sex: Female

DRUGS (2)
  1. KISQALI [Suspect]
     Active Substance: RIBOCICLIB
     Indication: Breast cancer metastatic
     Dosage: 600 MG, QD
     Route: 048
     Dates: start: 20230216
  2. KISQALI [Suspect]
     Active Substance: RIBOCICLIB
     Dosage: 200 MG, TID
     Route: 065
     Dates: start: 202302

REACTIONS (6)
  - Pyrexia [Unknown]
  - Bacterial infection [Unknown]
  - Metastases to liver [Unknown]
  - Hepatitis [Unknown]
  - Metastases to gallbladder [Unknown]
  - Liver injury [Unknown]
